FAERS Safety Report 9531127 (Version 3)
Quarter: 2013Q3

REPORT INFORMATION
  Report Type: Report from Study
  Country: NL (occurrence: NL)
  Receive Date: 20130918
  Receipt Date: 20130927
  Transmission Date: 20140515
  Serious: Yes (Hospitalization)
  Sender: FDA-Public Use
  Company Number: PHHO2013NL011990

PATIENT
  Sex: 0

DRUGS (2)
  1. SANDIMMUN [Suspect]
     Indication: STEM CELL TRANSPLANT
     Dosage: 900 MG, QD
     Route: 048
     Dates: start: 20121225
  2. MYCOPHENOLIC ACID [Suspect]
     Indication: STEM CELL TRANSPLANT
     Dosage: 2160 MG, QD
     Route: 048
     Dates: start: 20121228

REACTIONS (3)
  - Syncope [Recovered/Resolved]
  - Convulsion [Recovered/Resolved]
  - Blood creatinine increased [Recovered/Resolved]
